FAERS Safety Report 7367164-1 (Version None)
Quarter: 2011Q1

REPORT INFORMATION
  Report Type: 
  Country: None (occurrence: None)
  Receive Date: 20110311
  Receipt Date: 20110228
  Transmission Date: 20110831
  Serious: Yes (Disabling)
  Sender: FDA-Public Use
  Company Number: FR-004756

PATIENT
  Sex: Male
  Weight: 100 kg

DRUGS (2)
  1. FIRMAGON [Suspect]
     Indication: PROSTATE CANCER
     Dosage: (240 MG 1X SUBCUTANEOUS) ; (80 MG 1X SUBCUTANEOUS)
     Route: 058
     Dates: start: 20110112, end: 20110112
  2. FIRMAGON [Suspect]
     Indication: PROSTATE CANCER
     Dosage: (240 MG 1X SUBCUTANEOUS) ; (80 MG 1X SUBCUTANEOUS)
     Route: 058
     Dates: start: 20110210, end: 20110210

REACTIONS (5)
  - INJECTION SITE INDURATION [None]
  - INJECTION SITE INFLAMMATION [None]
  - GAIT DISTURBANCE [None]
  - INJECTION SITE NODULE [None]
  - INJECTION SITE PAIN [None]
